FAERS Safety Report 11420575 (Version 1)
Quarter: 2015Q3

REPORT INFORMATION
  Report Type: Spontaneous
  Country: US (occurrence: US)
  Receive Date: 20150826
  Receipt Date: 20150826
  Transmission Date: 20151125
  Serious: No
  Sender: FDA-Public Use
  Company Number: US-BAYER-2015-405202

PATIENT
  Sex: Female

DRUGS (2)
  1. BEYAZ [Suspect]
     Active Substance: DROSPIRENONE\ETHINYL ESTRADIOL\LEVOMEFOLATE CALCIUM
     Indication: ACNE
     Dosage: UNK
     Dates: start: 2009
  2. BEYAZ [Suspect]
     Active Substance: DROSPIRENONE\ETHINYL ESTRADIOL\LEVOMEFOLATE CALCIUM
     Indication: CONTRACEPTION

REACTIONS (3)
  - Metrorrhagia [None]
  - Menstruation delayed [None]
  - Vaginal discharge [None]

NARRATIVE: CASE EVENT DATE: 201505
